FAERS Safety Report 5639015-4 (Version None)
Quarter: 2008Q1

REPORT INFORMATION
  Report Type: 
  Country: None (occurrence: None)
  Receive Date: 20080226
  Receipt Date: 20080215
  Transmission Date: 20080703
  Serious: Yes (Life-Threatening, Hospitalization, Disabling, Other)
  Sender: FDA-Public Use
  Company Number: GB-JNJFOC-20080104855

PATIENT
  Sex: Female
  Weight: 66 kg

DRUGS (5)
  1. INFLIXIMAB [Suspect]
     Route: 042
  2. INFLIXIMAB [Suspect]
     Route: 042
  3. INFLIXIMAB [Suspect]
     Indication: CROHN'S DISEASE
     Route: 042
  4. MERCAPTOPURINE [Concomitant]
     Indication: RENAL FAILURE ACUTE
  5. MERCAPTOPURINE [Concomitant]
     Indication: THROMBOCYTOPENIA

REACTIONS (4)
  - HAEMOLYTIC URAEMIC SYNDROME [None]
  - MALAISE [None]
  - THROMBOCYTOPENIA [None]
  - URTICARIA [None]
